FAERS Safety Report 8533943-8 (Version None)
Quarter: 2012Q3

REPORT INFORMATION
  Report Type: 
  Country: None (occurrence: None)
  Receive Date: 20120724
  Receipt Date: 20120719
  Transmission Date: 20120928
  Serious: Yes (Death, Other)
  Sender: FDA-Public Use
  Company Number: US-GILEAD-2012-0057619

PATIENT
  Sex: Male

DRUGS (2)
  1. LETAIRIS [Suspect]
     Indication: PULMONARY HYPERTENSION
     Dosage: 10 MG, UNK
     Route: 048
     Dates: start: 20120203
  2. LETAIRIS [Suspect]
     Indication: LEFT VENTRICULAR FAILURE

REACTIONS (5)
  - CARDIAC FAILURE CONGESTIVE [None]
  - PULMONARY FIBROSIS [None]
  - PULMONARY ARTERIAL HYPERTENSION [None]
  - DEATH [None]
  - ATRIAL FIBRILLATION [None]
